FAERS Safety Report 10427889 (Version 1)
Quarter: 2014Q3

REPORT INFORMATION
  Report Type: Spontaneous
  Country: AT (occurrence: AT)
  Receive Date: 20140903
  Receipt Date: 20140903
  Transmission Date: 20150326
  Serious: Yes (Other)
  Sender: FDA-Public Use
  Company Number: AT-ABBVIE-14K-009-1276747-00

PATIENT
  Sex: Female

DRUGS (1)
  1. HUMIRA [Suspect]
     Active Substance: ADALIMUMAB
     Indication: CROHN^S DISEASE
     Dates: start: 2011

REACTIONS (3)
  - Lichen sclerosus [Recovered/Resolved with Sequelae]
  - Lichen sclerosus [Unknown]
  - Fungal infection [Unknown]

NARRATIVE: CASE EVENT DATE: 2013
